FAERS Safety Report 10297042 (Version 1)
Quarter: 2014Q3

REPORT INFORMATION
  Report Type: Spontaneous
  Country: US (occurrence: None)
  Receive Date: 20140708
  Receipt Date: 20140708
  Transmission Date: 20150326
  Serious: Yes (Hospitalization)
  Sender: FDA-Public Use
  Company Number: None

PATIENT
  Age: 81 Year
  Sex: Male
  Weight: 85.3 kg

DRUGS (3)
  1. WARFARIN [Suspect]
     Active Substance: WARFARIN
     Indication: STENT PLACEMENT
     Dates: start: 20140527, end: 20140627
  2. WARFARIN [Suspect]
     Active Substance: WARFARIN
     Indication: CARDIAC DISORDER
     Dates: start: 20140527, end: 20140627
  3. ASPIRIN. [Suspect]
     Active Substance: ASPIRIN
     Route: 048
     Dates: start: 20140522

REACTIONS (9)
  - Dyspnoea exertional [None]
  - Gastric polyps [None]
  - International normalised ratio increased [None]
  - Anaemia [None]
  - Melaena [None]
  - Upper gastrointestinal haemorrhage [None]
  - Hypotension [None]
  - Polyp [None]
  - Syncope [None]

NARRATIVE: CASE EVENT DATE: 20140627
